FAERS Safety Report 4525526-1 (Version None)
Quarter: 2004Q4

REPORT INFORMATION
  Report Type: 
  Country: None (occurrence: None)
  Receive Date: 20041116
  Receipt Date: 20040924
  Transmission Date: 20050328
  Serious: No
  Sender: FDA-Public Use
  Company Number: S04-USA-06414-01

PATIENT
  Age: 94 Year
  Sex: Female

DRUGS (13)
  1. NAMENDA [Suspect]
     Indication: DEMENTIA ALZHEIMER'S TYPE
     Dosage: 20 MG QD PO
     Route: 048
     Dates: start: 20040101
  2. NAMENDA [Suspect]
     Indication: DEMENTIA ALZHEIMER'S TYPE
     Dosage: 5 MG QD PO
     Route: 048
     Dates: start: 20040801, end: 20040101
  3. ARICEPT [Concomitant]
  4. PLAVIX [Concomitant]
  5. NAMENDA [Suspect]
     Indication: DEMENTIA ALZHEIMER'S TYPE
     Dosage: 10 MG QD PO
     Route: 048
     Dates: start: 20040101, end: 20040101
  6. NAMENDA [Suspect]
     Indication: DEMENTIA ALZHEIMER'S TYPE
     Dosage: 15 MG QD PO
     Route: 048
     Dates: start: 20040101, end: 20040101
  7. MACRODANTIN [Concomitant]
  8. TIMOLOL MALEATE [Concomitant]
  9. XALATAN [Concomitant]
  10. VITAMIN B-12 [Concomitant]
  11. VITAMIN C [Concomitant]
  12. OCCUVITE [Concomitant]
  13. CLARITIN [Concomitant]

REACTIONS (4)
  - DYSARTHRIA [None]
  - HYPOTENSION [None]
  - SOMNOLENCE [None]
  - SYNCOPE [None]
